FAERS Safety Report 6867018-0 (Version None)
Quarter: 2010Q3

REPORT INFORMATION
  Report Type: 
  Country: None (occurrence: None)
  Receive Date: 20100722
  Receipt Date: 20100712
  Transmission Date: 20110219
  Serious: Yes (Death, Hospitalization)
  Sender: FDA-Public Use
  Company Number: US-BAXTER-2010BH018067

PATIENT
  Age: 85 Year
  Sex: Male

DRUGS (1)
  1. DIANEAL [Suspect]
     Indication: PERITONEAL DIALYSIS
     Route: 033
     Dates: end: 20100701

REACTIONS (4)
  - DEATH [None]
  - INFECTION [None]
  - PERITONEAL CLOUDY EFFLUENT [None]
  - PERITONEAL DIALYSIS COMPLICATION [None]
